FAERS Safety Report 9414483 (Version 1)
Quarter: 2013Q3

REPORT INFORMATION
  Report Type: Report from Study
  Country: DE (occurrence: DE)
  Receive Date: 20130723
  Receipt Date: 20130723
  Transmission Date: 20140515
  Serious: Yes (Other)
  Sender: FDA-Public Use
  Company Number: DE-GLAXOSMITHKLINE-B0909047A

PATIENT
  Age: 49 Year
  Sex: Male

DRUGS (1)
  1. RETIGABINE [Suspect]
     Indication: PARTIAL SEIZURES
     Route: 048
     Dates: start: 20070417, end: 20130619

REACTIONS (1)
  - Retinal pigmentation [Unknown]
